FAERS Safety Report 10838174 (Version 1)
Quarter: 2015Q1

REPORT INFORMATION
  Report Type: Report from Study
  Country: US (occurrence: US)
  Receive Date: 20150219
  Receipt Date: 20150219
  Transmission Date: 20150721
  Serious: Yes (Hospitalization)
  Sender: FDA-Public Use
  Company Number: US-ABBVIE-14P-163-1226719-00

PATIENT
  Age: 29 Year
  Sex: Male

DRUGS (1)
  1. HUMIRA [Suspect]
     Active Substance: ADALIMUMAB
     Indication: PSORIATIC ARTHROPATHY
     Dates: start: 20140205

REACTIONS (5)
  - Joint injury [Recovering/Resolving]
  - Scapula fracture [Recovering/Resolving]
  - Road traffic accident [Recovering/Resolving]
  - Laceration [Recovering/Resolving]
  - Pulmonary contusion [Recovering/Resolving]

NARRATIVE: CASE EVENT DATE: 20140402
